FAERS Safety Report 8784698 (Version 1)
Quarter: 2012Q4

REPORT INFORMATION
  Report Type: Spontaneous
  Country: US (occurrence: None)
  Receive Date: 20120831
  Receipt Date: 20120831
  Transmission Date: 20130627
  Serious: Yes (Life-Threatening)
  Sender: FDA-Public Use
  Company Number: 1388016

PATIENT
  Age: 63 Year
  Sex: Male
  Weight: 105.9 kg

DRUGS (3)
  1. NIPENT [Suspect]
     Indication: CHRONIC LYMPHOCYTIC LEUKEMIA
     Dates: start: 20050607, end: 20050607
  2. CYTOXAN [Suspect]
     Indication: CHRONIC LYMPHOCYTIC LEUKEMIA
     Dates: start: 20050607, end: 20050607
  3. RITUXAN [Suspect]
     Indication: CHRONIC LYMPHOCYTIC LEUKEMIA
     Dates: start: 20050706, end: 20050706

REACTIONS (1)
  - Hyperuricaemia [None]
